FAERS Safety Report 10117526 (Version 1)
Quarter: 2014Q2

REPORT INFORMATION
  Report Type: Spontaneous
  Country: US (occurrence: US)
  Receive Date: 20140425
  Receipt Date: 20140425
  Transmission Date: 20141212
  Serious: No
  Sender: FDA-Public Use
  Company Number: US-GILEAD-2013-0074180

PATIENT
  Age: 53 Year
  Sex: Male
  Weight: 77.98 kg

DRUGS (1)
  1. ATRIPLA [Suspect]
     Indication: PRODUCT USED FOR UNKNOWN INDICATION

REACTIONS (1)
  - Insomnia [Recovered/Resolved]
